FAERS Safety Report 11289264 (Version 4)
Quarter: 2015Q3

REPORT INFORMATION
  Report Type: Spontaneous
  Country: US (occurrence: US)
  Receive Date: 20150721
  Receipt Date: 20150921
  Transmission Date: 20151125
  Serious: Yes (Hospitalization, Other)
  Sender: FDA-Public Use
  Company Number: US-GLAXOSMITHKLINE-US2015GSK103364

PATIENT
  Age: 9 Year
  Sex: Male
  Weight: 26.65 kg

DRUGS (5)
  1. FLOLAN [Suspect]
     Active Substance: EPOPROSTENOL SODIUM
     Dosage: 65.5 NG/KG/MIN CONTINUOUS
     Route: 042
  2. REVATIO [Concomitant]
     Active Substance: SILDENAFIL CITRATE
  3. SILDENAFIL. [Concomitant]
     Active Substance: SILDENAFIL
  4. FLOLAN [Suspect]
     Active Substance: EPOPROSTENOL SODIUM
     Indication: PULMONARY ARTERIAL HYPERTENSION
     Dosage: 71.3 NG/KG/MIN: CONCENTRATION 30,000 NG/ML; PUMP RATE 82 ML/DAY; VIAL STRENGTH 1.5 MG/ML, CO
     Dates: start: 20051019
  5. FLOLAN [Suspect]
     Active Substance: EPOPROSTENOL SODIUM
     Dosage: 73.9 NG/KG/MIN
     Route: 042

REACTIONS (2)
  - Device related infection [Recovered/Resolved]
  - Catheter site extravasation [Unknown]

NARRATIVE: CASE EVENT DATE: 20150713
